FAERS Safety Report 25345312 (Version 3)
Quarter: 2025Q3

REPORT INFORMATION
  Report Type: Report from Study
  Country: US (occurrence: US)
  Receive Date: 20250522
  Receipt Date: 20250806
  Transmission Date: 20251020
  Serious: Yes (Hospitalization)
  Sender: BIOGEN
  Company Number: US-BIOGEN-2025BI01311761

PATIENT
  Sex: Male

DRUGS (2)
  1. VUMERITY [Interacting]
     Active Substance: DIROXIMEL FUMARATE
     Indication: Multiple sclerosis
     Dosage: MAINTENANCE DOSE
     Route: 050
     Dates: start: 20210618
  2. VUMERITY [Interacting]
     Active Substance: DIROXIMEL FUMARATE
     Route: 050

REACTIONS (4)
  - Diverticulitis [Unknown]
  - Procedural pain [Unknown]
  - Sputum retention [Unknown]
  - Drug interaction [Unknown]

NARRATIVE: CASE EVENT DATE: 20250101
